FAERS Safety Report 7002404-X (Version None)
Quarter: 2010Q3

REPORT INFORMATION
  Report Type: 
  Country: None (occurrence: None)
  Receive Date: 20100920
  Receipt Date: 20070604
  Transmission Date: 20110219
  Serious: Yes (Hospitalization)
  Sender: FDA-Public Use
  Company Number: US-ASTRAZENECA-2006UW26586

PATIENT
  Sex: Female
  Weight: 114.3 kg

DRUGS (12)
  1. SEROQUEL [Suspect]
     Indication: SLEEP APNOEA SYNDROME
     Dosage: 25 - 300 MG (FLUCTUATING)
     Route: 048
     Dates: start: 20010101
  2. SEROQUEL [Suspect]
     Route: 048
     Dates: end: 20030701
  3. ABILIFY [Concomitant]
  4. GEODON [Concomitant]
  5. RISPERDAL [Concomitant]
  6. TRILEPTAL [Concomitant]
  7. CLONOPIN [Concomitant]
  8. ACCUPRIL [Concomitant]
     Route: 048
     Dates: start: 20010101
  9. CARDURA [Concomitant]
     Route: 048
     Dates: start: 20010101
  10. LIPITOR [Concomitant]
     Route: 048
     Dates: start: 20010101
  11. REMERON [Concomitant]
     Route: 048
     Dates: start: 20010101
  12. WELLBUTRIN SR [Concomitant]
     Route: 048
     Dates: start: 20010101

REACTIONS (3)
  - DIABETES MELLITUS [None]
  - PANCREATITIS [None]
  - PNEUMONIA [None]
